FAERS Safety Report 8781778 (Version 1)
Quarter: 2012Q4

REPORT INFORMATION
  Report Type: 
  Country: US (occurrence: US)
  Receive Date: 20120913
  Receipt Date: 20120913
  Transmission Date: 20130627
  Serious: No
  Sender: FDA-Public Use
  Company Number: US-009507513-1208USA007809

PATIENT

DRUGS (3)
  1. VICTRELIS [Suspect]
     Indication: HEPATITIS C
  2. REBETOL [Suspect]
     Indication: HEPATITIS C
     Dosage: 1200 mg, qd, daily in divided doses
     Route: 048
     Dates: start: 20120712
  3. PEGASYS [Suspect]
     Indication: HEPATITIS C
     Dosage: 180 mg, UNK, 1 in 1 week
     Route: 058
     Dates: start: 20120712

REACTIONS (1)
  - Hot flush [Unknown]
